FAERS Safety Report 5268734-7 (Version None)
Quarter: 2007Q1

REPORT INFORMATION
  Report Type: 
  Country: None (occurrence: None)
  Receive Date: 20061213
  Receipt Date: 20040602
  Transmission Date: 20070707
  Serious: Yes (Other)
  Sender: FDA-Public Use
  Company Number: 2004UW09679

PATIENT
  Age: 49 Year
  Sex: Male
  Weight: 80.2867 kg

DRUGS (7)
  1. IRESSA [Suspect]
     Indication: NON-SMALL CELL LUNG CANCER
     Dosage: 250 MG QD PO
     Route: 048
     Dates: start: 20040427, end: 20040515
  2. NAPROSYN [Concomitant]
  3. TAGAMET [Concomitant]
  4. XANAX [Concomitant]
  5. AMBIEN [Concomitant]
  6. ZOFRAN [Concomitant]
  7. MORPHINE [Concomitant]

REACTIONS (5)
  - BREATH SOUNDS ABNORMAL [None]
  - CONFUSIONAL STATE [None]
  - COUGH [None]
  - FATIGUE [None]
  - INCREASED UPPER AIRWAY SECRETION [None]
